FAERS Safety Report 4411586-5 (Version None)
Quarter: 2004Q3

REPORT INFORMATION
  Report Type: 
  Country: None (occurrence: None)
  Receive Date: 20040730
  Receipt Date: 20030121
  Transmission Date: 20050211
  Serious: Yes (Life-Threatening, Hospitalization)
  Sender: FDA-Public Use
  Company Number: PHBS2003JP01063

PATIENT
  Age: 29 Year
  Sex: Female
  Weight: 50 kg

DRUGS (10)
  1. TEGRETOL [Suspect]
     Indication: MUSCLE SPASMS
     Dosage: 200 MG, BID
     Route: 048
     Dates: start: 20020815, end: 20020908
  2. TEGRETOL [Suspect]
     Dosage: 200 MG, TID
     Route: 048
     Dates: start: 20020909, end: 20020912
  3. TEGRETOL [Suspect]
     Dosage: 200 MG, QID
     Route: 048
     Dates: start: 20020913, end: 20020930
  4. TEGRETOL [Suspect]
     Dosage: 200 MG, TID
     Dates: start: 20021101, end: 20021212
  5. TEGRETOL [Suspect]
     Dosage: 200 MG, BID
     Route: 048
     Dates: start: 20021213, end: 20030109
  6. PREDONINE [Concomitant]
     Indication: MULTIPLE SCLEROSIS
     Dosage: 15 MG/DAY
     Route: 048
     Dates: start: 20021101
  7. SELBEX [Concomitant]
     Dosage: 150 MG/DAY
     Route: 048
     Dates: start: 20021002
  8. RIZE [Concomitant]
     Dosage: 5 MG/DAY
     Route: 048
     Dates: start: 20021002
  9. TERNELIN [Suspect]
     Indication: MYOTONIA
     Route: 065
     Dates: start: 20020901, end: 20020901
  10. GASTER [Suspect]
     Route: 065
     Dates: end: 20020101

REACTIONS (13)
  - ALANINE AMINOTRANSFERASE INCREASED [None]
  - ASPARTATE AMINOTRANSFERASE INCREASED [None]
  - BLOOD ALKALINE PHOSPHATASE INCREASED [None]
  - GAMMA-GLUTAMYLTRANSFERASE INCREASED [None]
  - HEPATIC FUNCTION ABNORMAL [None]
  - HYPOGAMMAGLOBULINAEMIA [None]
  - MULTIPLE SCLEROSIS [None]
  - MYOTONIA [None]
  - PNEUMONIA [None]
  - PRODUCTIVE COUGH [None]
  - PYREXIA [None]
  - RASH GENERALISED [None]
  - UPPER RESPIRATORY TRACT INFECTION [None]
